FAERS Safety Report 6941920-3 (Version None)
Quarter: 2010Q3

REPORT INFORMATION
  Report Type: 
  Country: None (occurrence: None)
  Receive Date: 20100826
  Receipt Date: 20100812
  Transmission Date: 20110219
  Serious: No
  Sender: FDA-Public Use
  Company Number: US-JNJFOC-20100804930

PATIENT
  Sex: Female
  Weight: 31.75 kg

DRUGS (7)
  1. FENTANYL CITRATE [Suspect]
     Indication: LYME DISEASE
     Route: 062
  2. FENTANYL CITRATE [Suspect]
     Route: 062
  3. ACETAMINOPHEN [Suspect]
     Indication: LYME DISEASE
     Route: 048
  4. PRILOSEC [Concomitant]
     Indication: ABDOMINAL DISCOMFORT
     Route: 048
  5. POTASSIUM [Concomitant]
     Indication: NUTRITIONAL SUPPORT
     Route: 048
  6. SYNTHROID [Concomitant]
     Indication: THYROID DISORDER
     Route: 048
  7. ESTRADIOL [Concomitant]
     Indication: HORMONE REPLACEMENT THERAPY
     Route: 048

REACTIONS (7)
  - COLD SWEAT [None]
  - DRUG DOSE OMISSION [None]
  - FEELING ABNORMAL [None]
  - INCORRECT DOSE ADMINISTERED [None]
  - PERIPHERAL COLDNESS [None]
  - RESTLESSNESS [None]
  - SKIN BURNING SENSATION [None]
